FAERS Safety Report 19798957 (Version 1)
Quarter: 2021Q3

REPORT INFORMATION
  Report Type: Spontaneous
  Country: US (occurrence: US)
  Receive Date: 20210907
  Receipt Date: 20210907
  Transmission Date: 20211014
  Serious: Yes (Hospitalization)
  Sender: FDA-Public Use
  Company Number: None

PATIENT
  Age: 60 Year
  Sex: Female
  Weight: 75.6 kg

DRUGS (22)
  1. TICAGRELOR. [Suspect]
     Active Substance: TICAGRELOR
     Indication: CORONARY ARTERY DISEASE
     Route: 048
     Dates: start: 20210520, end: 20210526
  2. ALBUTEROL. [Concomitant]
     Active Substance: ALBUTEROL
  3. AMMONIUM LACTATE CREAM [Concomitant]
     Active Substance: AMMONIUM LACTATE
  4. CLOTRIMAZOLE. [Concomitant]
     Active Substance: CLOTRIMAZOLE
  5. DIPHENHYDRAMINE ? HCL [Concomitant]
  6. AMITRIPTYLINE [Concomitant]
     Active Substance: AMITRIPTYLINE
  7. CLOBETASOL PROPIONATE. [Concomitant]
     Active Substance: CLOBETASOL PROPIONATE
  8. POLYVINYL ALCOHOL [Concomitant]
     Active Substance: POLYVINYL ALCOHOL
  9. ASPIRIN. [Concomitant]
     Active Substance: ASPIRIN
  10. ATORVASTATIN [Concomitant]
     Active Substance: ATORVASTATIN
  11. OLOPATADINE HCL [Concomitant]
     Active Substance: OLOPATADINE HYDROCHLORIDE
  12. BUDESONIDE?FORMOTEROL FUMARATE [Concomitant]
  13. INSULIN ? BASAGLAR [Concomitant]
  14. POTASSIUM CHLORIDE. [Concomitant]
     Active Substance: POTASSIUM CHLORIDE
  15. METOPROLOL XL [Concomitant]
     Active Substance: METOPROLOL SUCCINATE
  16. PREGABALIN. [Concomitant]
     Active Substance: PREGABALIN
  17. FAMOTIDINE. [Concomitant]
     Active Substance: FAMOTIDINE
  18. ACETAMINOPHEN. [Concomitant]
     Active Substance: ACETAMINOPHEN
  19. EXENATIDE. [Concomitant]
     Active Substance: EXENATIDE
  20. FUROSEMIDE. [Concomitant]
     Active Substance: FUROSEMIDE
  21. INSULIN ? NOVOLOG [Concomitant]
  22. LOSARTAN. [Concomitant]
     Active Substance: LOSARTAN

REACTIONS (1)
  - Retroperitoneal haemorrhage [None]

NARRATIVE: CASE EVENT DATE: 20210526
